FAERS Safety Report 15413559 (Version 4)
Quarter: 2018Q4

REPORT INFORMATION
  Report Type: Report from Study
  Country: None (occurrence: CH)
  Receive Date: 20180921
  Receipt Date: 20181029
  Transmission Date: 20190204
  Serious: Yes (Hospitalization, Other)
  Sender: FDA-Public Use
  Company Number: CH-ABBVIE-18S-151-2492707-00

PATIENT
  Sex: Female

DRUGS (5)
  1. DUODOPA [Suspect]
     Active Substance: CARBIDOPA\LEVODOPA
     Dosage: 24H THERAPY, MD 4ML; CRD 4.0ML/H; CRN 3.1ML/H; ED 2ML
     Route: 050
     Dates: start: 20170809, end: 20171219
  2. DUODOPA [Suspect]
     Active Substance: CARBIDOPA\LEVODOPA
     Dosage: 24H THERAPY MD 3ML; CRD 4.0ML/H; CRN 2.8ML/H; ED 2ML
     Route: 050
     Dates: start: 20171219
  3. DUODOPA [Suspect]
     Active Substance: CARBIDOPA\LEVODOPA
     Dosage: MD 3ML; CR-DAY 3.8ML/H; CR-NIGHT 2.8ML/H; ED 2ML-DISCONTINUED
     Route: 050
  4. DUODOPA [Suspect]
     Active Substance: CARBIDOPA\LEVODOPA
     Route: 050
     Dates: start: 20151123, end: 20170809
  5. DUODOPA [Suspect]
     Active Substance: CARBIDOPA\LEVODOPA
     Indication: PARKINSON^S DISEASE
     Route: 050
     Dates: start: 20151117, end: 201511

REACTIONS (2)
  - Urinary incontinence [Unknown]
  - Dementia [Not Recovered/Not Resolved]
